FAERS Safety Report 9667645 (Version 1)
Quarter: 2013Q4

REPORT INFORMATION
  Report Type: Spontaneous
  Country: US (occurrence: US)
  Receive Date: 20131101
  Receipt Date: 20131101
  Transmission Date: 20140711
  Serious: No
  Sender: FDA-Public Use
  Company Number: US-SAVIENT-2012S1000080

PATIENT
  Age: 74 Year
  Sex: Male
  Weight: 77.11 kg

DRUGS (4)
  1. KRYSTEXXA INJECTION [Suspect]
     Indication: GOUT
     Route: 042
     Dates: start: 20120606
  2. ANTIHISTAMINES [Concomitant]
     Indication: PREMEDICATION
     Dates: start: 20120606
  3. COLCRYS [Concomitant]
     Indication: GOUT
     Dates: start: 20120606
  4. LISINOPRIL [Concomitant]
     Indication: PULMONARY HYPERTENSION
     Dates: start: 2006

REACTIONS (2)
  - Gout [Recovered/Resolved]
  - Drug ineffective [Unknown]
